FAERS Safety Report 26059764 (Version 1)
Quarter: 2025Q4

REPORT INFORMATION
  Report Type: Spontaneous
  Country: US (occurrence: US)
  Receive Date: 20251118
  Receipt Date: 20251118
  Transmission Date: 20260117
  Serious: Yes (Other)
  Sender: PFIZER
  Company Number: US-PFIZER INC-PV202500134523

PATIENT
  Age: 66 Year
  Sex: Female

DRUGS (2)
  1. XELJANZ XR [Suspect]
     Active Substance: TOFACITINIB CITRATE
     Indication: Rheumatoid arthritis
     Dosage: 11 MG, DAILY
     Route: 048
     Dates: start: 2019
  2. XELJANZ XR [Suspect]
     Active Substance: TOFACITINIB CITRATE
     Dosage: TAKE 1/2 OF AN 11MG XR/SPLITTING THESE 11MG XR TABLETS AGAIN AND IS TAKING 1/2 TABLET DAILY

REACTIONS (7)
  - Knee arthroplasty [Unknown]
  - Joint swelling [Not Recovered/Not Resolved]
  - Nail infection [Recovered/Resolved]
  - Arthropathy [Unknown]
  - Condition aggravated [Unknown]
  - Off label use [Unknown]
  - Wrong technique in product usage process [Unknown]

NARRATIVE: CASE EVENT DATE: 20210701
